FAERS Safety Report 24624225 (Version 1)
Quarter: 2024Q4

REPORT INFORMATION
  Report Type: Spontaneous
  Country: US (occurrence: None)
  Receive Date: 20241115
  Receipt Date: 20241115
  Transmission Date: 20250115
  Serious: Yes (Hospitalization)
  Sender: Public
  Company Number: None

PATIENT
  Sex: Male
  Weight: 141.2 kg

DRUGS (3)
  1. CISPLATIN [Suspect]
     Active Substance: CISPLATIN
  2. IFOSFAMIDE [Suspect]
     Active Substance: IFOSFAMIDE
  3. TAXOL [Suspect]
     Active Substance: PACLITAXEL

REACTIONS (3)
  - Wound infection [None]
  - Wound dehiscence [None]
  - Mobility decreased [None]

NARRATIVE: CASE EVENT DATE: 20190423
